FAERS Safety Report 4972852-8 (Version None)
Quarter: 2006Q2

REPORT INFORMATION
  Report Type: 
  Country: None (occurrence: None)
  Receive Date: 20060410
  Receipt Date: 20060328
  Transmission Date: 20061013
  Serious: Yes (Hospitalization, Disabling, Other)
  Sender: FDA-Public Use
  Company Number: 2004220225US

PATIENT
  Age: 53 Year
  Sex: Female

DRUGS (5)
  1. BEXTRA [Suspect]
     Indication: JOINT SWELLING
     Dosage: 40 MG (20 MG, 2 IN 1 D); ORAL
     Route: 048
     Dates: start: 20040329, end: 20040101
  2. CODEINE (CODEINE) [Suspect]
     Indication: ILL-DEFINED DISORDER
  3. ACIPHEX [Suspect]
     Indication: GASTRIC DISORDER
     Dates: start: 20040101
  4. CORTISONE ACETATE TAB [Concomitant]
  5. TYLENOL [Concomitant]

REACTIONS (28)
  - APHAGIA [None]
  - BLOOD POTASSIUM DECREASED [None]
  - CONFUSIONAL STATE [None]
  - DIARRHOEA [None]
  - DIVERTICULUM GASTRIC [None]
  - DRUG HYPERSENSITIVITY [None]
  - DYSPEPSIA [None]
  - DYSPHAGIA [None]
  - EATING DISORDER [None]
  - FALL [None]
  - HALLUCINATIONS, MIXED [None]
  - INFECTION [None]
  - INSOMNIA [None]
  - JOINT INJURY [None]
  - MALAISE [None]
  - MENISCUS LESION [None]
  - MENTAL DISORDER [None]
  - NAUSEA [None]
  - OBSTRUCTIVE AIRWAYS DISORDER [None]
  - OEDEMA PERIPHERAL [None]
  - OESOPHAGEAL STENOSIS [None]
  - OESOPHAGEAL ULCER [None]
  - PATELLA FRACTURE [None]
  - POLLAKIURIA [None]
  - PRURITUS GENERALISED [None]
  - SUICIDAL IDEATION [None]
  - VOMITING [None]
  - WEIGHT DECREASED [None]
